FAERS Safety Report 5471312-8 (Version None)
Quarter: 2007Q3

REPORT INFORMATION
  Report Type: 
  Country: None (occurrence: None)
  Receive Date: 20070928
  Receipt Date: 20070913
  Transmission Date: 20080115
  Serious: Yes (Other)
  Sender: FDA-Public Use
  Company Number: MX-AMGEN-UK243417

PATIENT
  Age: 49 Year
  Sex: Male
  Weight: 88 kg

DRUGS (5)
  1. NEULASTIM [Suspect]
     Indication: CHEMOTHERAPY
     Route: 058
     Dates: start: 20060814, end: 20061102
  2. DOXORUBICIN HYDROCHLORIDE [Suspect]
     Route: 065
     Dates: start: 20061023, end: 20061023
  3. CYCLOPHOSPHAMIDE [Concomitant]
     Route: 065
     Dates: start: 20061023, end: 20061023
  4. VINCRISTINE [Concomitant]
     Route: 065
     Dates: start: 20061023, end: 20061023
  5. PREDNISONE [Concomitant]
     Route: 065
     Dates: start: 20061023, end: 20061023

REACTIONS (4)
  - ASTHENIA [None]
  - BACK PAIN [None]
  - COLD SWEAT [None]
  - HYPOTENSION [None]
